FAERS Safety Report 11566905 (Version 1)
Quarter: 2015Q3

REPORT INFORMATION
  Report Type: Spontaneous
  Country: US (occurrence: US)
  Receive Date: 20150916
  Receipt Date: 20150916
  Transmission Date: 20151125
  Serious: No
  Sender: FDA-Public Use
  Company Number: US-ELI_LILLY_AND_COMPANY-US200906006903

PATIENT
  Sex: Female

DRUGS (12)
  1. FORTEO [Suspect]
     Active Substance: TERIPARATIDE
     Dosage: UNK, UNK
     Dates: start: 20070814
  2. FORTEO [Suspect]
     Active Substance: TERIPARATIDE
  3. FORTEO [Suspect]
     Active Substance: TERIPARATIDE
  4. FORTEO [Suspect]
     Active Substance: TERIPARATIDE
  5. FORTEO [Suspect]
     Active Substance: TERIPARATIDE
  6. FORTEO [Suspect]
     Active Substance: TERIPARATIDE
  7. FORTEO [Suspect]
     Active Substance: TERIPARATIDE
  8. FORTEO [Suspect]
     Active Substance: TERIPARATIDE
  9. FORTEO [Suspect]
     Active Substance: TERIPARATIDE
  10. FORTEO [Suspect]
     Active Substance: TERIPARATIDE
  11. FORTEO [Suspect]
     Active Substance: TERIPARATIDE
  12. FORTEO [Suspect]
     Active Substance: TERIPARATIDE

REACTIONS (2)
  - Anger [Unknown]
  - Pain [Not Recovered/Not Resolved]

NARRATIVE: CASE EVENT DATE: 2008
